FAERS Safety Report 14860011 (Version 2)
Quarter: 2018Q3

REPORT INFORMATION
  Report Type: Spontaneous
  Country: US (occurrence: US)
  Receive Date: 20180508
  Receipt Date: 20180702
  Transmission Date: 20181010
  Serious: Yes (Other)
  Sender: FDA-Public Use
  Company Number: US-JNJFOC-20180504835

PATIENT
  Age: 53 Year
  Sex: Male

DRUGS (1)
  1. INVOKANA [Suspect]
     Active Substance: CANAGLIFLOZIN
     Indication: TYPE 2 DIABETES MELLITUS
     Route: 048
     Dates: start: 20161101, end: 201708

REACTIONS (5)
  - Dry gangrene [Unknown]
  - Amputation [Unknown]
  - Localised infection [Unknown]
  - Toe amputation [Unknown]
  - Necrosis [Unknown]

NARRATIVE: CASE EVENT DATE: 201704
